FAERS Safety Report 5047001-0 (Version None)
Quarter: 2006Q2

REPORT INFORMATION
  Report Type: 
  Country: None (occurrence: None)
  Receive Date: 20060630
  Receipt Date: 20060621
  Transmission Date: 20061013
  Serious: Yes (Hospitalization)
  Sender: FDA-Public Use
  Company Number: 2006078945

PATIENT
  Age: 81 Year
  Sex: Male

DRUGS (9)
  1. NORVASC [Suspect]
     Dosage: 5 MG ORAL
     Route: 048
  2. ALDACTONE [Concomitant]
  3. DIOVAN [Concomitant]
  4. BUFFERIN [Concomitant]
  5. DIART (AZOSEMIDE) [Concomitant]
  6. LEVOTHYROXINE SODIUM [Concomitant]
  7. FAMOTIDINE [Concomitant]
  8. PURSENNID (SENNA LEAF) [Concomitant]
  9. ISOSORBIDE DINITRATE [Concomitant]

REACTIONS (2)
  - PNEUMONIA [None]
  - RASH PRURITIC [None]
